FAERS Safety Report 7037277-2 (Version None)
Quarter: 2010Q4

REPORT INFORMATION
  Report Type: 
  Country: None (occurrence: None)
  Receive Date: 20101011
  Receipt Date: 20100928
  Transmission Date: 20110411
  Serious: Yes (Other)
  Sender: FDA-Public Use
  Company Number: US-ELI_LILLY_AND_COMPANY-US201008008536

PATIENT
  Sex: Female

DRUGS (24)
  1. FORTEO [Suspect]
     Indication: OSTEOPOROSIS
     Dosage: 20 UG, DAILY (1/D)
     Dates: start: 20100819, end: 20100908
  2. FORTEO [Suspect]
     Dosage: 20 UG, DAILY (1/D)
     Dates: start: 20100920
  3. LISINOPRIL [Concomitant]
     Dosage: UNK, UNKNOWN
  4. HYDROCHLOROTHIAZIDE [Concomitant]
     Dosage: UNK, UNKNOWN
  5. LEVOTHYROXINE SODIUM [Concomitant]
     Dosage: UNK, UNKNOWN
  6. LEVOXYL [Concomitant]
     Dosage: UNK, UNKNOWN
  7. BONIVA [Concomitant]
     Dosage: UNK, UNKNOWN
  8. GABAPENTIN [Concomitant]
     Dosage: UNK, UNKNOWN
  9. PANTOPRAZOLE SODIUM [Concomitant]
     Dosage: UNK, UNKNOWN
  10. MYSOLINE [Concomitant]
     Dosage: UNK, UNKNOWN
  11. SPIRIVA [Concomitant]
     Dosage: UNK, UNKNOWN
  12. PRAVASTAN [Concomitant]
     Dosage: UNK, UNKNOWN
  13. ALBUTEROL [Concomitant]
     Dosage: UNK, UNKNOWN
  14. CALCITONIN-SALMON [Concomitant]
     Dosage: UNK, UNKNOWN
  15. IBUPROFEN [Concomitant]
     Dosage: UNK, UNKNOWN
  16. ACYCLOVIR SODIUM [Concomitant]
     Dosage: UNK, UNKNOWN
  17. HYOSCYAMINE [Concomitant]
     Dosage: UNK, UNKNOWN
  18. OPIUM TINCTURE [Concomitant]
     Dosage: UNK, UNKNOWN
  19. TRAMADOL HYDROCHLORIDE [Concomitant]
     Dosage: UNK, UNKNOWN
  20. MULTI-VITAMIN [Concomitant]
     Dosage: UNK, UNKNOWN
  21. ZINC [Concomitant]
     Dosage: UNK, UNKNOWN
  22. VITAMIN D [Concomitant]
     Dosage: UNK, UNKNOWN
  23. LOVAZA [Concomitant]
     Dosage: UNK, UNKNOWN
  24. CALCIUM [Concomitant]
     Dosage: UNK, UNKNOWN

REACTIONS (1)
  - LUMBAR VERTEBRAL FRACTURE [None]
